FAERS Safety Report 4556640-2 (Version None)
Quarter: 2005Q1

REPORT INFORMATION
  Report Type: 
  Country: None (occurrence: None)
  Receive Date: 20050114
  Receipt Date: 20050104
  Transmission Date: 20050727
  Serious: Yes (Hospitalization)
  Sender: FDA-Public Use
  Company Number: MK200501-0055-1

PATIENT
  Age: 34 Year
  Sex: Female

DRUGS (3)
  1. ANAFRANIL CAP [Suspect]
     Indication: DEPRESSION
     Dates: start: 20040222, end: 20040402
  2. DEROXAT (STRENGTH UNK) [Suspect]
     Indication: DEPRESSION
     Dates: start: 20040406, end: 20040420
  3. URSOLVAN-200 [Concomitant]

REACTIONS (6)
  - BIOPSY LIVER ABNORMAL [None]
  - BLOOD ALKALINE PHOSPHATASE INCREASED [None]
  - CAESAREAN SECTION [None]
  - CHOLESTASIS [None]
  - HEPATIC STEATOSIS [None]
  - PRURITUS [None]
